FAERS Safety Report 8234097-8 (Version None)
Quarter: 2012Q1

REPORT INFORMATION
  Report Type: 
  Country: None (occurrence: None)
  Receive Date: 20120326
  Receipt Date: 20120326
  Transmission Date: 20120608
  Serious: Yes (Disabling, Other)
  Sender: FDA-Public Use
  Company Number: None

PATIENT
  Age: 14 Year
  Sex: Female
  Weight: 47.627 kg

DRUGS (2)
  1. FOCALIN XR [Suspect]
     Indication: ATTENTION DEFICIT/HYPERACTIVITY DISORDER
     Dosage: 10MG
     Route: 048
  2. FOCALIN [Concomitant]
     Indication: ATTENTION DEFICIT/HYPERACTIVITY DISORDER
     Dosage: 5MG
     Route: 048

REACTIONS (8)
  - CONDITION AGGRAVATED [None]
  - RAYNAUD'S PHENOMENON [None]
  - NAIL DISORDER [None]
  - DRUG INEFFECTIVE [None]
  - BLISTER [None]
  - ERYTHEMA [None]
  - SKIN DISCOLOURATION [None]
  - IMPAIRED HEALING [None]
